FAERS Safety Report 4889014-5 (Version None)
Quarter: 2005Q4

REPORT INFORMATION
  Report Type: 
  Country: None (occurrence: None)
  Receive Date: 20051215
  Receipt Date: 20050603
  Transmission Date: 20060501
  Serious: Yes (Hospitalization)
  Sender: FDA-Public Use
  Company Number: 2005054886

PATIENT
  Age: 69 Year
  Sex: Female

DRUGS (12)
  1. BEXTRA [Suspect]
     Indication: ILL-DEFINED DISORDER
  2. PREDNISONE TAB [Suspect]
     Indication: ILL-DEFINED DISORDER
  3. METHOTREXATE [Suspect]
     Indication: ILL-DEFINED DISORDER
  4. PLAVIX [Suspect]
     Indication: ATRIOVENTRICULAR BLOCK
     Dosage: 75 MG (DAILY), ORAL
     Route: 048
     Dates: start: 20041201
  5. AGGRENOX [Suspect]
     Indication: ILL-DEFINED DISORDER
  6. REMICADE [Concomitant]
  7. EVISTA [Concomitant]
  8. ENALAPRIL MALEATE [Concomitant]
  9. LEVOTHROID [Concomitant]
  10. HYDROCHLOROTHIAZIDE [Concomitant]
  11. ASPIRIN [Concomitant]
  12. IRON (IRON) [Concomitant]

REACTIONS (8)
  - DIABETES MELLITUS [None]
  - DIARRHOEA [None]
  - FATIGUE [None]
  - HEADACHE [None]
  - MOOD SWINGS [None]
  - PYREXIA [None]
  - SKIN ULCER [None]
  - UNEVALUABLE EVENT [None]
